FAERS Safety Report 6535365-8 (Version None)
Quarter: 2009Q4

REPORT INFORMATION
  Report Type: 
  Country: None (occurrence: None)
  Receive Date: 20091228
  Receipt Date: 20090630
  Transmission Date: 20100525
  Serious: Yes (Other)
  Sender: FDA-Public Use
  Company Number: US-003055

PATIENT
  Age: 27 Year
  Sex: Male

DRUGS (2)
  1. MULTIHANCE [Suspect]
     Indication: NECK PAIN
     Dosage: 17ML ONCE INTRAVENOUS
     Route: 042
     Dates: start: 20090622, end: 20090622
  2. MULTIHANCE [Suspect]
     Indication: NUCLEAR MAGNETIC RESONANCE IMAGING
     Dosage: 17ML ONCE INTRAVENOUS
     Route: 042
     Dates: start: 20090622, end: 20090622

REACTIONS (2)
  - ANAPHYLACTIC REACTION [None]
  - CONVULSION [None]
